FAERS Safety Report 14244297 (Version 2)
Quarter: 2017Q4

REPORT INFORMATION
  Report Type: Spontaneous
  Country: US (occurrence: US)
  Receive Date: 20171201
  Receipt Date: 20171221
  Transmission Date: 20180321
  Serious: Yes (Hospitalization, Other)
  Sender: FDA-Public Use
  Company Number: US-009507513-1711USA013455

PATIENT
  Age: 62 Year
  Sex: Female

DRUGS (1)
  1. CUBICIN [Suspect]
     Active Substance: DAPTOMYCIN
     Indication: OSTEOMYELITIS
     Dosage: UNK

REACTIONS (3)
  - Pneumonitis [Recovered/Resolved]
  - Product use in unapproved indication [Unknown]
  - Acute respiratory distress syndrome [Recovered/Resolved]
